FAERS Safety Report 15726366 (Version 1)
Quarter: 2018Q4

REPORT INFORMATION
  Report Type: Spontaneous
  Country: US (occurrence: US)
  Receive Date: 20181216
  Receipt Date: 20181216
  Transmission Date: 20190205
  Serious: No
  Sender: FDA-Public Use
  Company Number: US-JNJFOC-20181201169

PATIENT
  Age: 19 Year
  Sex: Male
  Weight: 96.2 kg

DRUGS (1)
  1. REMICADE [Suspect]
     Active Substance: INFLIXIMAB
     Indication: CROHN^S DISEASE
     Route: 042
     Dates: start: 20180711

REACTIONS (2)
  - Product dose omission [Unknown]
  - Procedural complication [Unknown]

NARRATIVE: CASE EVENT DATE: 20181101
